FAERS Safety Report 5943203-7 (Version None)
Quarter: 2008Q4

REPORT INFORMATION
  Report Type: 
  Country: None (occurrence: None)
  Receive Date: 20081106
  Receipt Date: 20081031
  Transmission Date: 20090506
  Serious: Yes (Hospitalization)
  Sender: FDA-Public Use
  Company Number: B0542556A

PATIENT
  Age: 60 Year
  Sex: Female

DRUGS (5)
  1. VALTREX [Suspect]
     Indication: HERPES ZOSTER
     Dosage: 2G THREE TIMES PER DAY
     Route: 048
     Dates: start: 20081010, end: 20081015
  2. TOMILL [Suspect]
     Indication: RASH
     Route: 042
     Dates: start: 20081010, end: 20081010
  3. ZOVIRAX [Suspect]
     Indication: DRUG USE FOR UNKNOWN INDICATION
     Route: 042
     Dates: start: 20081010, end: 20081010
  4. ZOVIRAX [Suspect]
     Route: 042
     Dates: start: 20081014, end: 20081014
  5. LOXONIN [Concomitant]
     Route: 048
     Dates: start: 20081010, end: 20081010

REACTIONS (9)
  - ANOREXIA [None]
  - DIARRHOEA [None]
  - EYE OEDEMA [None]
  - EYELID OEDEMA [None]
  - MOBILITY DECREASED [None]
  - PAIN [None]
  - RASH [None]
  - RENAL FAILURE ACUTE [None]
  - SCAB [None]
